FAERS Safety Report 17326595 (Version 2)
Quarter: 2024Q4

REPORT INFORMATION
  Report Type: Spontaneous
  Country: US (occurrence: US)
  Receive Date: 20200127
  Receipt Date: 20241016
  Transmission Date: 20250114
  Serious: Yes (Hospitalization, Other)
  Sender: PIRAMAL
  Company Number: US-PIRAMAL ENTERPRISES LIMITED-2019-PEL-000246

PATIENT

DRUGS (2)
  1. GABLOFEN [Suspect]
     Active Substance: BACLOFEN
     Indication: Muscle spasticity
     Dosage: 786.9 MICROGRAM PER DAY
     Route: 037
  2. GABLOFEN [Suspect]
     Active Substance: BACLOFEN
     Indication: Cerebral palsy

REACTIONS (5)
  - Scar [Unknown]
  - Implant site infection [Unknown]
  - Withdrawal syndrome [Unknown]
  - Hypertonia [Unknown]
  - Device infusion issue [Unknown]

NARRATIVE: CASE EVENT DATE: 20190101
